FAERS Safety Report 5895815-7 (Version None)
Quarter: 2008Q3

REPORT INFORMATION
  Report Type: 
  Country: None (occurrence: None)
  Receive Date: 20080822
  Receipt Date: 20080711
  Transmission Date: 20090109
  Serious: No
  Sender: FDA-Public Use
  Company Number: ADE2008-0249

PATIENT
  Age: 49 Year
  Sex: Female

DRUGS (1)
  1. CEPHALEXIN [Suspect]
     Indication: MUSCLE STRAIN
     Dosage: ORAL
     Route: 048

REACTIONS (2)
  - FUNGAL INFECTION [None]
  - MEDICATION ERROR [None]
